FAERS Safety Report 9014324 (Version 1)
Quarter: 2013Q1

REPORT INFORMATION
  Report Type: Report from Study
  Country: BR (occurrence: BR)
  Receive Date: 20130115
  Receipt Date: 20130115
  Transmission Date: 20140127
  Serious: Yes (Hospitalization, Other)
  Sender: FDA-Public Use
  Company Number: BR-AMGEN-BRACT2011025201

PATIENT
  Age: 35 Year
  Sex: Female
  Weight: 74 kg

DRUGS (7)
  1. ETANERCEPT [Suspect]
     Indication: RHEUMATOID ARTHRITIS
     Dosage: 25 MG, 2X/WEEK
     Route: 058
     Dates: start: 20080301, end: 20110215
  2. ETANERCEPT [Suspect]
     Dosage: 25 MG, 2X/WEEK
     Dates: end: 20110505
  3. ETANERCEPT [Suspect]
     Dosage: 50 MG, ONCE WEEKLY
     Route: 058
     Dates: start: 201109, end: 201202
  4. ETANERCEPT [Suspect]
     Dosage: UNK
     Dates: start: 201109
  5. CAPTOPRIL [Concomitant]
     Indication: HYPERTENSION
     Dosage: UNK
  6. ARAVA [Concomitant]
     Indication: RHEUMATOID ARTHRITIS
     Dosage: UNK
     Dates: start: 2008
  7. LOSARTAN [Concomitant]
     Indication: HYPERTENSION
     Dosage: UNK
     Dates: start: 2011

REACTIONS (4)
  - Blister [Unknown]
  - Poisoning [Unknown]
  - Pneumonia [Recovered/Resolved]
  - Tuberculosis [Unknown]
